FAERS Safety Report 7009355-5 (Version None)
Quarter: 2010Q3

REPORT INFORMATION
  Report Type: 
  Country: None (occurrence: None)
  Receive Date: 20100921
  Receipt Date: 20100913
  Transmission Date: 20110219
  Serious: Yes (Death, Other)
  Sender: FDA-Public Use
  Company Number: 2010US003754

PATIENT
  Sex: Female

DRUGS (2)
  1. PROGRAF [Suspect]
     Indication: PROPHYLAXIS AGAINST GRAFT VERSUS HOST DISEASE
     Dosage: IV NOS, ORAL
  2. METHOTREXATE [Concomitant]

REACTIONS (6)
  - HEPATITIS [None]
  - HERPES ZOSTER [None]
  - OFF LABEL USE [None]
  - ORGANISING PNEUMONIA [None]
  - PARAINFLUENZAE VIRUS INFECTION [None]
  - SEPTIC SHOCK [None]
